FAERS Safety Report 19268975 (Version 1)
Quarter: 2021Q2

REPORT INFORMATION
  Report Type: Spontaneous
  Country: US (occurrence: US)
  Receive Date: 20210518
  Receipt Date: 20210518
  Transmission Date: 20210717
  Serious: No
  Sender: FDA-Public Use
  Company Number: None

PATIENT
  Age: 86 Year
  Sex: Male

DRUGS (1)
  1. ROPINIROLE (ROPINIROLE HCL 0.25MG TAB) [Suspect]
     Active Substance: ROPINIROLE HYDROCHLORIDE
     Indication: RESTLESS LEGS SYNDROME
     Dates: start: 20201204, end: 20210209

REACTIONS (4)
  - Palpitations [None]
  - Bradycardia [None]
  - Blood pressure decreased [None]
  - Atrial fibrillation [None]

NARRATIVE: CASE EVENT DATE: 20210209
